FAERS Safety Report 18220900 (Version 2)
Quarter: 2021Q1

REPORT INFORMATION
  Report Type: Spontaneous
  Country: MA (occurrence: MA)
  Receive Date: 20200902
  Receipt Date: 20210102
  Transmission Date: 20210419
  Serious: No
  Sender: FDA-Public Use
  Company Number: MA-LUPIN PHARMACEUTICALS INC.-2020-05202

PATIENT
  Age: 41 Year
  Sex: Male

DRUGS (3)
  1. ISONIAZID. [Suspect]
     Active Substance: ISONIAZID
     Indication: TUBERCULOSIS
     Dosage: UNK
     Route: 065
  2. INSULIN [Suspect]
     Active Substance: INSULIN NOS
     Indication: DIABETES MELLITUS
     Dosage: UNK
     Route: 065
  3. RIFAMPIN. [Suspect]
     Active Substance: RIFAMPIN
     Indication: TUBERCULOSIS
     Dosage: UNK
     Route: 065

REACTIONS (10)
  - Post inflammatory pigmentation change [Not Recovered/Not Resolved]
  - Paronychia [Unknown]
  - Nail dystrophy [Unknown]
  - Lichenoid keratosis [Recovered/Resolved with Sequelae]
  - Anonychia [Not Recovered/Not Resolved]
  - Onycholysis [Unknown]
  - Drug eruption [Recovered/Resolved with Sequelae]
  - Cheilitis [Recovered/Resolved with Sequelae]
  - Nail discolouration [Unknown]
  - Nail pterygium [Not Recovered/Not Resolved]
